FAERS Safety Report 16018697 (Version 3)
Quarter: 2019Q2

REPORT INFORMATION
  Report Type: Report from Study
  Country: CA (occurrence: CA)
  Receive Date: 20190228
  Receipt Date: 20190606
  Transmission Date: 20190711
  Serious: Yes (Other)
  Sender: FDA-Public Use
  Company Number: CA-GLAXOSMITHKLINE-CA2019GSK016374

PATIENT
  Sex: Female

DRUGS (3)
  1. ADVAIR HFA [Suspect]
     Active Substance: FLUTICASONE PROPIONATE\SALMETEROL XINAFOATE
     Indication: PRODUCT USED FOR UNKNOWN INDICATION
     Dosage: UNK
  2. MEPOLIZUMAB [Suspect]
     Active Substance: MEPOLIZUMAB
     Indication: ASTHMA
     Dosage: 100 MG, Z,MONTHLY
     Route: 042
     Dates: start: 20161228
  3. VENTOLIN [Suspect]
     Active Substance: ALBUTEROL SULFATE
     Indication: PRODUCT USED FOR UNKNOWN INDICATION
     Dosage: UNK

REACTIONS (12)
  - Weight decreased [Unknown]
  - Intracranial pressure increased [Unknown]
  - Vasculitis [Unknown]
  - Asthma [Unknown]
  - Vision blurred [Unknown]
  - Vomiting [Unknown]
  - Diplopia [Unknown]
  - Drug ineffective [Unknown]
  - Abdominal discomfort [Unknown]
  - Nausea [Unknown]
  - Visual impairment [Unknown]
  - Eosinophil count abnormal [Unknown]

NARRATIVE: CASE EVENT DATE: 2018
